FAERS Safety Report 7249670-3 (Version None)
Quarter: 2011Q1

REPORT INFORMATION
  Report Type: 
  Country: None (occurrence: None)
  Receive Date: 20110128
  Receipt Date: 20110118
  Transmission Date: 20110831
  Serious: Yes (Hospitalization)
  Sender: FDA-Public Use
  Company Number: CH-JNJFOC-20110105201

PATIENT
  Sex: Female

DRUGS (6)
  1. ONDANSETRON HYDROCHLORIDE [Suspect]
     Indication: SYNOVIAL SARCOMA
     Route: 065
  2. SOLU-MEDROL [Suspect]
     Indication: SYNOVIAL SARCOMA
     Route: 065
  3. MESNA [Suspect]
     Indication: SYNOVIAL SARCOMA
     Route: 065
  4. CAELYX [Suspect]
     Indication: SYNOVIAL SARCOMA
     Route: 042
  5. NEUPOGEN [Suspect]
     Indication: SYNOVIAL SARCOMA
     Route: 042
  6. IFOSFAMIDE [Suspect]
     Indication: SYNOVIAL SARCOMA
     Route: 065

REACTIONS (3)
  - PREMATURE LABOUR [None]
  - CAESAREAN SECTION [None]
  - DRUG EXPOSURE DURING PREGNANCY [None]
